FAERS Safety Report 6384062-0 (Version None)
Quarter: 2009Q4

REPORT INFORMATION
  Report Type: 
  Country: None (occurrence: None)
  Receive Date: 20091001
  Receipt Date: 20090928
  Transmission Date: 20100525
  Serious: Yes (Other)
  Sender: FDA-Public Use
  Company Number: US-ROXANE LABORATORIES, INC.-2009-RO-01008RO

PATIENT
  Age: 42 Year

DRUGS (3)
  1. LAMOTRIGINE [Suspect]
     Indication: EPILEPSY
     Dosage: 200 MG
  2. ATENOLOL [Suspect]
  3. LEVOTHYROXINE SODIUM [Suspect]

REACTIONS (3)
  - MENTAL DISORDER [None]
  - SENSORY DISTURBANCE [None]
  - WITHDRAWAL SYNDROME [None]
